FAERS Safety Report 23329278 (Version 1)
Quarter: 2023Q4

REPORT INFORMATION
  Report Type: Spontaneous
  Country: US (occurrence: US)
  Receive Date: 20231222
  Receipt Date: 20231222
  Transmission Date: 20240109
  Serious: Yes (Hospitalization)
  Sender: FDA-Public Use
  Company Number: US-JNJFOC-20231240963

PATIENT
  Age: 43 Year
  Sex: Male

DRUGS (2)
  1. SPRAVATO [Suspect]
     Active Substance: ESKETAMINE
     Indication: Depression
     Dosage: ^56 MG, 1 TOTAL DOSE^
     Dates: start: 20230717, end: 20230717
  2. SPRAVATO [Suspect]
     Active Substance: ESKETAMINE
     Dosage: ^84 MG, 19 TOTAL DOSES^
     Dates: start: 20230720, end: 20231208

REACTIONS (4)
  - Suicidal ideation [Unknown]
  - Panic attack [Unknown]
  - Dissociation [Unknown]
  - Drug screen positive [Unknown]

NARRATIVE: CASE EVENT DATE: 20231208
